FAERS Safety Report 20301902 (Version 1)
Quarter: 2022Q1

REPORT INFORMATION
  Report Type: Spontaneous
  Country: US (occurrence: US)
  Receive Date: 20220105
  Receipt Date: 20220105
  Transmission Date: 20220423
  Serious: No
  Sender: FDA-Public Use
  Company Number: US-ABBVIE-21K-163-4172417-00

PATIENT
  Sex: Female

DRUGS (1)
  1. VENCLEXTA [Suspect]
     Active Substance: VENETOCLAX
     Indication: Polycythaemia vera
     Route: 048

REACTIONS (4)
  - Arthralgia [Unknown]
  - Off label use [Recovered/Resolved]
  - Pain in extremity [Unknown]
  - Pain [Unknown]
